FAERS Safety Report 7874468 (Version 2)
Quarter: 2012Q4

REPORT INFORMATION
  Report Type: 
  Country: VE (occurrence: VE)
  Receive Date: 20110328
  Receipt Date: 20121127
  Transmission Date: 20130627
  Serious: No
  Sender: FDA-Public Use
  Company Number: PHHY2011VE21018

PATIENT
  Sex: Female

DRUGS (6)
  1. ACLASTA [Suspect]
     Indication: OSTEOPOROSIS
     Dosage: 5 mg, yearly
     Route: 042
     Dates: start: 2009
  2. ACLASTA [Suspect]
     Dosage: 5 mg, yearly
     Route: 042
     Dates: start: 201006
  3. CALCIUM [Concomitant]
     Dosage: UNK UKN, UNK
  4. ROCALTROL [Concomitant]
     Dosage: UNK UKN, UNK
  5. ADALAT OROS [Concomitant]
     Indication: HYPERTENSION
     Dosage: 30 mg, daily
     Route: 048
     Dates: start: 2006
  6. ENALAPRIL [Concomitant]
     Indication: HYPERTENSION
     Dosage: 10 mg, daily
     Route: 048
     Dates: start: 2006

REACTIONS (1)
  - No adverse event [Unknown]
